FAERS Safety Report 16542250 (Version 2)
Quarter: 2019Q3

REPORT INFORMATION
  Report Type: Spontaneous
  Country: PL (occurrence: PL)
  Receive Date: 20190708
  Receipt Date: 20190719
  Transmission Date: 20191004
  Serious: Yes (Other)
  Sender: FDA-Public Use
  Company Number: PHHY2019PL152372

PATIENT
  Age: 7 Year
  Sex: Female

DRUGS (4)
  1. METHYLPREDNISOLONE. [Suspect]
     Active Substance: METHYLPREDNISOLONE
     Indication: RENAL TRANSPLANT
     Route: 065
  2. RITUXIMAB. [Suspect]
     Active Substance: RITUXIMAB
     Indication: RENAL TRANSPLANT
     Route: 065
  3. RITUXIMAB. [Suspect]
     Active Substance: RITUXIMAB
     Indication: IMMUNOSUPPRESSANT DRUG THERAPY
  4. METHYLPREDNISOLONE. [Suspect]
     Active Substance: METHYLPREDNISOLONE
     Indication: IMMUNOSUPPRESSANT DRUG THERAPY

REACTIONS (10)
  - Anaemia [Unknown]
  - Remission not achieved [Unknown]
  - Product use in unapproved indication [Unknown]
  - Renal transplant failure [Unknown]
  - Thrombocytopenia [Unknown]
  - Neurological symptom [Unknown]
  - Haemolysis [Unknown]
  - Thrombotic microangiopathy [Unknown]
  - Complications of transplanted kidney [Unknown]
  - Drug resistance [Unknown]
